FAERS Safety Report 14902282 (Version 1)
Quarter: 2018Q2

REPORT INFORMATION
  Report Type: Spontaneous
  Country: RU (occurrence: RU)
  Receive Date: 20180516
  Receipt Date: 20180516
  Transmission Date: 20180711
  Serious: Yes (Hospitalization, Other)
  Sender: FDA-Public Use
  Company Number: RU-ASTRAZENECA-2017SF11791

PATIENT
  Age: 56 Year
  Sex: Male
  Weight: 70 kg

DRUGS (5)
  1. BRILINTA [Suspect]
     Active Substance: TICAGRELOR
     Indication: MYOCARDIAL INFARCTION
     Route: 048
     Dates: start: 201706
  2. BISOPROLOL [Concomitant]
     Active Substance: BISOPROLOL
  3. THROMBO ASS [Concomitant]
     Active Substance: ASPIRIN
  4. TULIP [Concomitant]
  5. PRESTARIUM A [Concomitant]
     Active Substance: PERINDOPRIL ARGININE

REACTIONS (2)
  - Cardiac arrest [Recovered/Resolved with Sequelae]
  - Dyspnoea exertional [Not Recovered/Not Resolved]

NARRATIVE: CASE EVENT DATE: 201708
